FAERS Safety Report 13710216 (Version 2)
Quarter: 2017Q3

REPORT INFORMATION
  Report Type: Spontaneous
  Country: GB (occurrence: CY)
  Receive Date: 20170703
  Receipt Date: 20170713
  Transmission Date: 20171127
  Serious: Yes (Hospitalization, Other)
  Sender: FDA-Public Use
  Company Number: GB-DEXPHARM-20170947

PATIENT
  Age: 43 Year
  Sex: Male

DRUGS (6)
  1. ALENDRONATE SODIUM. [Suspect]
     Active Substance: ALENDRONATE SODIUM
     Route: 048
  2. ARCOXIA [Suspect]
     Active Substance: ETORICOXIB
  3. AMITRIPTYLINE HYDROCHLORIDE. [Suspect]
     Active Substance: AMITRIPTYLINE HYDROCHLORIDE
     Route: 048
  4. ADCAL-D3 [Suspect]
     Active Substance: CALCIUM CARBONATE\CHOLECALCIFEROL
  5. OMEPRAZOLE. [Suspect]
     Active Substance: OMEPRAZOLE
  6. SIMPONI [Suspect]
     Active Substance: GOLIMUMAB
     Route: 058
     Dates: start: 20170612

REACTIONS (2)
  - Heart rate increased [Unknown]
  - Circulatory collapse [Unknown]

NARRATIVE: CASE EVENT DATE: 20170613
